FAERS Safety Report 8824498 (Version 1)
Quarter: 2012Q4

REPORT INFORMATION
  Report Type: 
  Country: US (occurrence: US)
  Receive Date: 20121004
  Receipt Date: 20121004
  Transmission Date: 20130627
  Serious: No
  Sender: FDA-Public Use
  Company Number: US-PFIZER INC-2012243170

PATIENT
  Age: 49 Year
  Sex: Male
  Weight: 79.4 kg

DRUGS (1)
  1. NICOTROL INHALER [Suspect]
     Indication: SMOKING CESSATION THERAPY
     Dosage: UNK
     Dates: start: 20120929

REACTIONS (3)
  - Drug ineffective [Unknown]
  - Dysgeusia [Unknown]
  - Feeling abnormal [Unknown]
